FAERS Safety Report 4765628-8 (Version None)
Quarter: 2005Q3

REPORT INFORMATION
  Report Type: 
  Country: None (occurrence: None)
  Receive Date: 20050906
  Receipt Date: 20050823
  Transmission Date: 20060218
  Serious: Yes (Hospitalization)
  Sender: FDA-Public Use
  Company Number: 2005JP001690

PATIENT
  Age: 56 Year
  Sex: Female

DRUGS (10)
  1. TACROLIMUS CAPSULES (TACROLIMUS CAPSULES) CAPSULE [Suspect]
     Indication: RHEUMATOID ARTHRITIS
     Dosage: 2.00 MG, /D, ORAL
     Route: 048
  2. PREDNISOLONE [Concomitant]
  3. VOLTAREN [Concomitant]
  4. ACTONEL [Concomitant]
  5. PREDOHAN (PREDNISOLONE) TABLET [Concomitant]
  6. PRAVASTATIN [Concomitant]
  7. TAKEPRON (LANSOPRAZOLE) TABLET [Concomitant]
  8. SELBEX (TEPRENONE) [Concomitant]
  9. ANPLAG (SARPOGRELATE HYDROCHLORIDE) [Concomitant]
  10. ACTOS [Concomitant]

REACTIONS (1)
  - SUBARACHNOID HAEMORRHAGE [None]
